FAERS Safety Report 8084612-2 (Version None)
Quarter: 2012Q1

REPORT INFORMATION
  Report Type: 
  Country: None (occurrence: None)
  Receive Date: 20120128
  Receipt Date: 20110331
  Transmission Date: 20120608
  Serious: No
  Sender: FDA-Public Use
  Company Number: US-ABBOTT-11P-163-0715394-00

PATIENT
  Sex: Female
  Weight: 93.524 kg

DRUGS (1)
  1. HUMIRA [Suspect]
     Indication: RHEUMATOID ARTHRITIS
     Dates: start: 20090101

REACTIONS (7)
  - SINUSITIS [None]
  - BLOOD PRESSURE INCREASED [None]
  - COUGH [None]
  - WEIGHT INCREASED [None]
  - DYSPNOEA [None]
  - DECREASED APPETITE [None]
  - URINARY INCONTINENCE [None]
